FAERS Safety Report 6131724-6 (Version None)
Quarter: 2009Q1

REPORT INFORMATION
  Report Type: 
  Country: None (occurrence: None)
  Receive Date: 20090325
  Receipt Date: 20090316
  Transmission Date: 20090719
  Serious: Yes (Hospitalization)
  Sender: FDA-Public Use
  Company Number: US-ELI_LILLY_AND_COMPANY-US200903004278

PATIENT
  Age: 68 Year
  Sex: Female
  Weight: 129.71 kg

DRUGS (5)
  1. BYETTA [Suspect]
     Dosage: 10 UG, UNK
     Dates: start: 20080701, end: 20090306
  2. VYTORIN [Concomitant]
  3. NIASPAN [Concomitant]
  4. FLONASE [Concomitant]
  5. BETA BLOCKING AGENTS [Concomitant]

REACTIONS (1)
  - PANCREATITIS ACUTE [None]
